FAERS Safety Report 6720617-9 (Version None)
Quarter: 2010Q2

REPORT INFORMATION
  Report Type: 
  Country: None (occurrence: None)
  Receive Date: 20100510
  Receipt Date: 20100429
  Transmission Date: 20101027
  Serious: Yes (Hospitalization)
  Sender: FDA-Public Use
  Company Number: 2009AC000411

PATIENT
  Age: 66 Year
  Sex: Female
  Weight: 106.1417 kg

DRUGS (28)
  1. DIGOXIN [Suspect]
     Dosage: 0.25 MG;QD;PO
     Route: 048
     Dates: start: 20010101, end: 20080501
  2. DIGOXIN [Suspect]
     Dosage: .125 MG;QD;PO
     Route: 048
     Dates: start: 20080711, end: 20080726
  3. ACTOS [Concomitant]
  4. MALEATE [Concomitant]
  5. FURPSEMIDE [Concomitant]
  6. ALLOPURINOL [Concomitant]
  7. LIPITOR [Concomitant]
  8. COREG [Concomitant]
  9. GLIPIZIDE [Concomitant]
  10. AMITRIPTYLINE [Concomitant]
  11. CALCITRIOL [Concomitant]
  12. SPIRONOLACTONE [Concomitant]
  13. ENALAPRIL [Concomitant]
  14. ZOLPIDEM [Concomitant]
  15. LEVOTHYROXINE SODIUM [Concomitant]
  16. CARVEDILOL [Concomitant]
  17. AMOXICILLIN [Concomitant]
  18. JANUVIA [Concomitant]
  19. ZANTAC [Concomitant]
  20. NIACIN [Concomitant]
  21. ASPIRIN [Concomitant]
  22. TYLENOL (CAPLET) [Concomitant]
  23. CLARITIN [Concomitant]
  24. ADALAT [Concomitant]
  25. IRON [Concomitant]
  26. NIACIN [Concomitant]
  27. LOVENOX [Concomitant]
  28. GLUCOPHAGE [Concomitant]

REACTIONS (34)
  - ANHEDONIA [None]
  - ATRIAL CONDUCTION TIME PROLONGATION [None]
  - ATRIOVENTRICULAR BLOCK SECOND DEGREE [None]
  - BLOOD CREATININE INCREASED [None]
  - CARDIOMYOPATHY [None]
  - CARPAL TUNNEL SYNDROME [None]
  - CONDITION AGGRAVATED [None]
  - CONFUSIONAL STATE [None]
  - CORONARY ARTERY DISEASE [None]
  - DEPRESSION [None]
  - DYSPNOEA [None]
  - ECONOMIC PROBLEM [None]
  - ELECTROCARDIOGRAM QRS COMPLEX PROLONGED [None]
  - EMOTIONAL DISORDER [None]
  - EMOTIONAL DISTRESS [None]
  - EXECUTIVE DYSFUNCTION [None]
  - FATIGUE [None]
  - FLUID RETENTION [None]
  - MEMORY IMPAIRMENT [None]
  - MENTAL DISORDER [None]
  - MULTIPLE INJURIES [None]
  - NAUSEA [None]
  - PAIN [None]
  - PARAESTHESIA [None]
  - PRODUCT QUALITY ISSUE [None]
  - RESTLESS LEGS SYNDROME [None]
  - SLEEP APNOEA SYNDROME [None]
  - SNORING [None]
  - SOMNOLENCE [None]
  - THERAPEUTIC AGENT TOXICITY [None]
  - TREATMENT NONCOMPLIANCE [None]
  - VISUAL IMPAIRMENT [None]
  - VOMITING [None]
  - WEIGHT INCREASED [None]
